FAERS Safety Report 23288012 (Version 2)
Quarter: 2023Q4

REPORT INFORMATION
  Report Type: Spontaneous
  Country: US (occurrence: US)
  Receive Date: 20231212
  Receipt Date: 20231226
  Transmission Date: 20240109
  Serious: Yes (Other)
  Sender: FDA-Public Use
  Company Number: US-PURACAP-US-2023EPCSPO01802

PATIENT
  Sex: Female

DRUGS (1)
  1. DUTASTERIDE [Suspect]
     Active Substance: DUTASTERIDE
     Indication: Product used for unknown indication
     Route: 065
     Dates: start: 202302, end: 20231114

REACTIONS (6)
  - Lipoedema [Not Recovered/Not Resolved]
  - Hair colour changes [Not Recovered/Not Resolved]
  - Hair growth abnormal [Not Recovered/Not Resolved]
  - Skin swelling [Not Recovered/Not Resolved]
  - Breast tenderness [Not Recovered/Not Resolved]
  - Product use issue [Unknown]

NARRATIVE: CASE EVENT DATE: 20230101
